FAERS Safety Report 5496699-1 (Version None)
Quarter: 2007Q4

REPORT INFORMATION
  Report Type: 
  Country: None (occurrence: None)
  Receive Date: 20071025
  Receipt Date: 20070705
  Transmission Date: 20080405
  Serious: Yes (Hospitalization)
  Sender: FDA-Public Use
  Company Number: A0661937A

PATIENT
  Age: 69 Year
  Sex: Female

DRUGS (15)
  1. ADVAIR DISKUS 100/50 [Suspect]
     Indication: CHRONIC OBSTRUCTIVE PULMONARY DISEASE
     Dosage: 1PUFF TWICE PER DAY
     Route: 055
     Dates: start: 20061101
  2. ACTONEL [Concomitant]
  3. CALCIUM CITRATE [Concomitant]
  4. EFFEXOR [Concomitant]
  5. MULTI-VITAMIN [Concomitant]
  6. SEROQUEL [Concomitant]
  7. GABAPENTIN [Concomitant]
  8. TRAZODONE HCL [Concomitant]
  9. EXELON [Concomitant]
  10. LORA TAB [Concomitant]
  11. PREMARIN [Concomitant]
  12. SPIRIVA [Concomitant]
  13. ALBUTEROL [Concomitant]
  14. VESICARE [Concomitant]
  15. FOLIC ACID [Concomitant]

REACTIONS (2)
  - PNEUMONIA [None]
  - PYREXIA [None]
